FAERS Safety Report 6992871-X (Version None)
Quarter: 2010Q3

REPORT INFORMATION
  Report Type: 
  Country: None (occurrence: None)
  Receive Date: 20100917
  Receipt Date: 20100910
  Transmission Date: 20110219
  Serious: Yes (Hospitalization)
  Sender: FDA-Public Use
  Company Number: B0674655A

PATIENT
  Sex: Female
  Weight: 84 kg

DRUGS (4)
  1. TOPOTECAN [Suspect]
     Dosage: .75MGM2 CYCLIC
     Route: 042
     Dates: start: 20100610
  2. CISPLATIN [Suspect]
     Dosage: 50MGM2 CYCLIC
     Route: 042
     Dates: start: 20100610, end: 20100817
  3. PARKEMED [Concomitant]
     Dosage: 500MG SEVEN TIMES PER DAY
     Route: 048
     Dates: start: 20100816, end: 20100908
  4. CARBOPLATIN [Concomitant]

REACTIONS (1)
  - BLOOD CREATININE INCREASED [None]
